FAERS Safety Report 7101325-1 (Version None)
Quarter: 2010Q4

REPORT INFORMATION
  Report Type: 
  Country: None (occurrence: None)
  Receive Date: 20101105
  Receipt Date: 20101022
  Transmission Date: 20110411
  Serious: Yes (Hospitalization, Other)
  Sender: FDA-Public Use
  Company Number: 2010004724

PATIENT
  Age: 75 Year
  Sex: Female

DRUGS (6)
  1. ERLOTINIB HYDROCHLORIDE [Suspect]
     Indication: NON-SMALL CELL LUNG CANCER
     Dosage: (150 MG, DAILY), ORAL
     Route: 048
     Dates: start: 20081020, end: 20101001
  2. ATENOLOL [Concomitant]
  3. LIPITOR [Concomitant]
  4. LISINOPRIL [Concomitant]
  5. DITROPAN XL [Concomitant]
  6. TEGRETOL [Concomitant]

REACTIONS (8)
  - DIVERTICULITIS [None]
  - GASTRITIS [None]
  - INAPPROPRIATE ANTIDIURETIC HORMONE SECRETION [None]
  - METASTASES TO MENINGES [None]
  - NAUSEA [None]
  - NO THERAPEUTIC RESPONSE [None]
  - PARANEOPLASTIC SYNDROME [None]
  - VOMITING [None]
